FAERS Safety Report 5892336-2 (Version None)
Quarter: 2008Q3

REPORT INFORMATION
  Report Type: 
  Country: None (occurrence: None)
  Receive Date: 20080919
  Receipt Date: 20080919
  Transmission Date: 20090109
  Serious: Yes (Other)
  Sender: FDA-Public Use
  Company Number: None

PATIENT
  Sex: Female
  Weight: 88.905 kg

DRUGS (2)
  1. BUPROPION HCL [Suspect]
     Indication: DEPRESSION
     Dosage: 150MG ONE DAILY PO
     Route: 048
     Dates: start: 20080613
  2. EFFEXOR [Suspect]
     Indication: DEPRESSION
     Dosage: 50 MG ONE BID PO
     Route: 048
     Dates: start: 20080812

REACTIONS (5)
  - ASTHENIA [None]
  - HYPERHIDROSIS [None]
  - HYPOAESTHESIA FACIAL [None]
  - LIBIDO DECREASED [None]
  - TREATMENT FAILURE [None]
